FAERS Safety Report 8062894-0 (Version None)
Quarter: 2012Q1

REPORT INFORMATION
  Report Type: 
  Country: None (occurrence: None)
  Receive Date: 20120123
  Receipt Date: 20120123
  Transmission Date: 20120608
  Serious: Yes (Hospitalization)
  Sender: FDA-Public Use
  Company Number: None

PATIENT
  Age: 26 Year
  Sex: Female
  Weight: 56.699 kg

DRUGS (6)
  1. GABAPENTIN [Concomitant]
     Route: 048
  2. ELMIRON [Concomitant]
     Route: 048
  3. NUVIGIL [Suspect]
     Indication: HYPERSOMNIA
     Dosage: 1 PILL
     Route: 048
     Dates: start: 20120110, end: 20120112
  4. HYDROXYZINE [Concomitant]
     Route: 048
  5. QUASENSE BIRTH CONTROL [Concomitant]
     Route: 048
  6. MULTI-VITAMIN [Concomitant]
     Route: 048

REACTIONS (6)
  - DYSPHAGIA [None]
  - CHEST DISCOMFORT [None]
  - PARAESTHESIA [None]
  - DRY MOUTH [None]
  - HYPOAESTHESIA [None]
  - DYSPNOEA [None]
